FAERS Safety Report 10640681 (Version 1)
Quarter: 2014Q4

REPORT INFORMATION
  Report Type: Spontaneous
  Country: US (occurrence: None)
  Receive Date: 20141208
  Receipt Date: 20141208
  Transmission Date: 20150529
  Serious: Yes (Other)
  Sender: FDA-Public Use
  Company Number: None

PATIENT
  Age: 50 Year
  Sex: Male
  Weight: 77.11 kg

DRUGS (1)
  1. LEVAQUIN [Suspect]
     Active Substance: LEVOFLOXACIN
     Indication: POST PROCEDURAL INFECTION
     Dosage: 1
     Route: 048
     Dates: start: 20130809, end: 20130810

REACTIONS (8)
  - Panic attack [None]
  - Paraesthesia [None]
  - Head discomfort [None]
  - Crying [None]
  - Burning sensation [None]
  - Restlessness [None]
  - Tendon pain [None]
  - Dizziness [None]

NARRATIVE: CASE EVENT DATE: 20140809
